FAERS Safety Report 16448792 (Version 2)
Quarter: 2019Q2

REPORT INFORMATION
  Report Type: Spontaneous
  Country: JP (occurrence: JP)
  Receive Date: 20190619
  Receipt Date: 20190621
  Transmission Date: 20190711
  Serious: Yes (Hospitalization, Other)
  Sender: FDA-Public Use
  Company Number: JP-009507513-1906JPN001057J

PATIENT
  Age: 75 Year
  Sex: Female

DRUGS (1)
  1. KEYTRUDA [Suspect]
     Active Substance: PEMBROLIZUMAB
     Indication: NON-SMALL CELL LUNG CANCER
     Dosage: 200 MILLIGRAM, Q3W
     Route: 041
     Dates: start: 20190401, end: 20190519

REACTIONS (4)
  - Pharyngeal erythema [Unknown]
  - Oropharyngeal swelling [Not Recovered/Not Resolved]
  - Stevens-Johnson syndrome [Unknown]
  - Lip swelling [Unknown]

NARRATIVE: CASE EVENT DATE: 20190610
